FAERS Safety Report 9670350 (Version 2)
Quarter: 2014Q4

REPORT INFORMATION
  Report Type: Spontaneous
  Country: CH (occurrence: CH)
  Receive Date: 20131105
  Receipt Date: 20141022
  Transmission Date: 20150529
  Serious: Yes (Other)
  Sender: FDA-Public Use
  Company Number: PHHY2013CH123602

PATIENT
  Age: 60 Year
  Sex: Male

DRUGS (5)
  1. ACE INHIBITOR NOS [Concomitant]
     Active Substance: UNSPECIFIED INGREDIENT
     Indication: PRODUCT USED FOR UNKNOWN INDICATION
     Route: 065
  2. TORASEMIDE [Concomitant]
     Active Substance: TORSEMIDE
     Indication: PRODUCT USED FOR UNKNOWN INDICATION
     Dosage: 5 MG, UNK
     Route: 065
  3. BETA BLOCKERS [Concomitant]
     Indication: PRODUCT USED FOR UNKNOWN INDICATION
     Route: 065
  4. ITRACONAZOLE. [Suspect]
     Active Substance: ITRACONAZOLE
     Indication: FUNGAL SKIN INFECTION
     Dosage: 200 MG, QD
     Route: 048
     Dates: start: 201209
  5. TORASEMIDE [Concomitant]
     Active Substance: TORSEMIDE
     Dosage: 15 MG, UNK
     Route: 065

REACTIONS (4)
  - Dyspnoea [Recovering/Resolving]
  - Brain natriuretic peptide increased [Recovering/Resolving]
  - Cardiac failure congestive [Unknown]
  - Blood pressure systolic increased [Recovering/Resolving]

NARRATIVE: CASE EVENT DATE: 201209
